FAERS Safety Report 8215645-0 (Version None)
Quarter: 2012Q1

REPORT INFORMATION
  Report Type: 
  Country: None (occurrence: None)
  Receive Date: 20120316
  Receipt Date: 20120307
  Transmission Date: 20120608
  Serious: Yes (Hospitalization, Other)
  Sender: FDA-Public Use
  Company Number: JP-ABBOTT-12P-087-0909170-00

PATIENT
  Sex: Female
  Weight: 46.1 kg

DRUGS (10)
  1. METHYLPREDNISOLONE [Concomitant]
     Indication: RHEUMATOID ARTHRITIS
     Route: 048
  2. OMEPRAZOLE [Concomitant]
     Indication: ULCER
     Route: 048
  3. OMEPRAZOLE [Concomitant]
     Indication: PROPHYLAXIS
  4. ASPIRIN [Concomitant]
     Indication: LACUNAR INFARCTION
     Route: 048
  5. ISONIAZID [Concomitant]
     Indication: ANTIBIOTIC PROPHYLAXIS
     Route: 048
  6. CELECOXIB [Concomitant]
     Indication: RHEUMATOID ARTHRITIS
     Route: 048
  7. TACROLIMUS [Concomitant]
     Indication: RHEUMATOID ARTHRITIS
     Route: 048
  8. CLARITHROMYCIN [Concomitant]
     Indication: BRONCHIOLITIS
     Route: 048
  9. HUMIRA [Suspect]
     Indication: RHEUMATOID ARTHRITIS
     Route: 058
     Dates: start: 20090805, end: 20100315
  10. ALENDRONATE SODIUM [Concomitant]
     Indication: OSTEOPOROSIS
     Route: 048

REACTIONS (9)
  - BRONCHITIS [None]
  - PRODUCTIVE COUGH [None]
  - CARDIAC FAILURE [None]
  - NAUSEA [None]
  - MALAISE [None]
  - RENAL FAILURE [None]
  - CARDIOMEGALY [None]
  - VOMITING [None]
  - PCO2 INCREASED [None]
